FAERS Safety Report 4592390-4 (Version None)
Quarter: 2005Q1

REPORT INFORMATION
  Report Type: 
  Country: None (occurrence: None)
  Receive Date: 20050228
  Receipt Date: 20050111
  Transmission Date: 20050727
  Serious: No
  Sender: FDA-Public Use
  Company Number: US-BRISTOL-MYERS SQUIBB COMPANY-12822516

PATIENT
  Age: 10 Year
  Sex: Male
  Weight: 71 kg

DRUGS (2)
  1. ABILIFY [Suspect]
     Indication: ABNORMAL BEHAVIOUR
     Route: 048
     Dates: start: 20041112, end: 20050112
  2. BENADRYL [Concomitant]
     Indication: SLEEP DISORDER

REACTIONS (2)
  - ASPARTATE AMINOTRANSFERASE INCREASED [None]
  - BLOOD AMYLASE INCREASED [None]
